FAERS Safety Report 23304676 (Version 1)
Quarter: 2023Q4

REPORT INFORMATION
  Report Type: Spontaneous
  Country: US (occurrence: US)
  Receive Date: 20231218
  Receipt Date: 20231218
  Transmission Date: 20240109
  Serious: Yes (Hospitalization, Other)
  Sender: FDA-Public Use
  Company Number: US-MLMSERVICE-2023112845927861

PATIENT
  Age: 23 Year
  Sex: Male

DRUGS (9)
  1. QUETIAPINE [Suspect]
     Active Substance: QUETIAPINE
     Indication: Antipsychotic therapy
  2. HALOPERIDOL [Suspect]
     Active Substance: HALOPERIDOL
     Indication: Antipsychotic therapy
  3. LORAZEPAM [Suspect]
     Active Substance: LORAZEPAM
     Indication: Antipsychotic therapy
  4. PALIPERIDONE PALMITATE [Suspect]
     Active Substance: PALIPERIDONE PALMITATE
     Indication: Antipsychotic therapy
  5. LITHIUM [Suspect]
     Active Substance: LITHIUM
     Indication: Schizoaffective disorder bipolar type
  6. KETAMINE [Concomitant]
     Active Substance: KETAMINE
  7. PROPOFOL [Concomitant]
     Active Substance: PROPOFOL
  8. VALPROATE [Concomitant]
     Active Substance: VALPROIC ACID
  9. GUANFACINE [Concomitant]
     Active Substance: GUANFACINE

REACTIONS (1)
  - Nephrogenic diabetes insipidus [Recovered/Resolved]
